FAERS Safety Report 14660793 (Version 1)
Quarter: 2018Q1

REPORT INFORMATION
  Report Type: Spontaneous
  Country: FR (occurrence: FR)
  Receive Date: 20180320
  Receipt Date: 20180320
  Transmission Date: 20180509
  Serious: Yes (Hospitalization)
  Sender: FDA-Public Use
  Company Number: FR-PFIZER INC-2018108716

PATIENT
  Age: 6 Year
  Sex: Male
  Weight: 25 kg

DRUGS (4)
  1. DOLIPRANE [Concomitant]
     Active Substance: ACETAMINOPHEN
     Indication: EAR INFECTION
     Dosage: UNK
     Dates: start: 20180131
  2. ADVILMED ENFANTS ET NOURRISSONS [Suspect]
     Active Substance: IBUPROFEN
     Indication: EAR INFECTION
     Dosage: UNK
     Route: 048
     Dates: start: 20180131, end: 20180205
  3. OFLOCET /00731801/ [Concomitant]
     Active Substance: OFLOXACIN
     Indication: EAR INFECTION
     Dosage: UNK
     Route: 001
     Dates: start: 20180131, end: 20180205
  4. CELESTENE /00008502/ [Suspect]
     Active Substance: BETAMETHASONE SODIUM PHOSPHATE
     Indication: EAR INFECTION
     Dosage: UNK
     Route: 048
     Dates: start: 20180131, end: 20180205

REACTIONS (2)
  - Condition aggravated [Recovered/Resolved]
  - Transverse sinus thrombosis [Recovering/Resolving]

NARRATIVE: CASE EVENT DATE: 20180205
